FAERS Safety Report 9052870 (Version 2)
Quarter: 2013Q1

REPORT INFORMATION
  Report Type: Spontaneous
  Country: US (occurrence: US)
  Receive Date: 20130207
  Receipt Date: 20130211
  Transmission Date: 20140127
  Serious: Yes (Other)
  Sender: FDA-Public Use
  Company Number: US-ASTRAZENECA-2013SE07885

PATIENT
  Sex: Male

DRUGS (2)
  1. PRILOSEC OTC [Suspect]
     Indication: GASTROOESOPHAGEAL REFLUX DISEASE
     Route: 048
     Dates: start: 20121227, end: 20130129
  2. AMBIEN [Concomitant]

REACTIONS (17)
  - Transient ischaemic attack [Unknown]
  - Paralysis [Unknown]
  - Decreased appetite [Unknown]
  - Weight decreased [Unknown]
  - Feeling jittery [Recovered/Resolved]
  - Bradyphrenia [Unknown]
  - Speech disorder [Recovered/Resolved]
  - Balance disorder [Unknown]
  - Paraesthesia [Recovered/Resolved]
  - Paraesthesia oral [Recovered/Resolved]
  - Paraesthesia [Recovered/Resolved]
  - Paraesthesia oral [Recovered/Resolved]
  - Dizziness [Unknown]
  - Agitation [Recovered/Resolved]
  - Headache [Unknown]
  - Confusional state [Unknown]
  - Restlessness [Unknown]
